FAERS Safety Report 6230342-9 (Version None)
Quarter: 2009Q2

REPORT INFORMATION
  Report Type: 
  Country: None (occurrence: None)
  Receive Date: 20090611
  Receipt Date: 20090602
  Transmission Date: 20091009
  Serious: Yes (Death)
  Sender: FDA-Public Use
  Company Number: OSCN-PR-0905S-0272

PATIENT
  Age: 55 Year
  Sex: Female

DRUGS (2)
  1. OMNISCAN [Suspect]
     Indication: CEREBROVASCULAR ACCIDENT
     Dosage: 30 ML, SINGLE DOSE, I.V.; 30 ML, SINGLE DOSE, I.V.
     Route: 042
     Dates: start: 20060626, end: 20060626
  2. OMNISCAN [Suspect]
     Indication: CEREBROVASCULAR ACCIDENT
     Dosage: 30 ML, SINGLE DOSE, I.V.; 30 ML, SINGLE DOSE, I.V.
     Route: 042
     Dates: start: 20060627, end: 20060627

REACTIONS (2)
  - DISEASE COMPLICATION [None]
  - NEPHROGENIC SYSTEMIC FIBROSIS [None]
